FAERS Safety Report 10221027 (Version 2)
Quarter: 2014Q2

REPORT INFORMATION
  Report Type: Spontaneous
  Country: US (occurrence: US)
  Receive Date: 20140606
  Receipt Date: 20140630
  Transmission Date: 20141212
  Serious: Yes (Hospitalization)
  Sender: FDA-Public Use
  Company Number: 2014SP001684

PATIENT
  Age: 61 Year
  Sex: Female
  Weight: 88 kg

DRUGS (4)
  1. LATUDA [Suspect]
     Indication: BIPOLAR DISORDER
     Route: 048
  2. LAMICTAL [Concomitant]
     Route: 048
  3. LITHIUM [Concomitant]
     Route: 048
  4. SYNTHROID [Concomitant]
     Route: 048

REACTIONS (3)
  - Overweight [Recovering/Resolving]
  - Depression [Not Recovered/Not Resolved]
  - Drug administration error [None]
